FAERS Safety Report 7611643-6 (Version None)
Quarter: 2011Q3

REPORT INFORMATION
  Report Type: 
  Country: None (occurrence: None)
  Receive Date: 20110715
  Receipt Date: 20110712
  Transmission Date: 20111222
  Serious: Yes (Death)
  Sender: FDA-Public Use
  Company Number: US-ACTELION-A-NJ2011-50621

PATIENT

DRUGS (5)
  1. EPOPROSTENOL SODIUM [Suspect]
     Dosage: 32 NG/KG, PER MIN
     Route: 041
  2. REVATIO [Concomitant]
  3. EPOPROSTENOL SODIUM [Suspect]
     Indication: PULMONARY ARTERIAL HYPERTENSION
     Dosage: 45 NG/KG, PER MIN
     Route: 041
     Dates: end: 20110525
  4. LETAIRIS [Concomitant]
  5. EPOPROSTENOL SODIUM [Suspect]
     Dosage: 5 NG/KG, PER MIN
     Route: 041
     Dates: start: 20101111

REACTIONS (6)
  - RESPIRATORY FAILURE [None]
  - DIALYSIS [None]
  - RIGHT VENTRICULAR FAILURE [None]
  - ENDOTRACHEAL INTUBATION [None]
  - RENAL FAILURE [None]
  - CONDITION AGGRAVATED [None]
